FAERS Safety Report 11199319 (Version 1)
Quarter: 2015Q2

REPORT INFORMATION
  Report Type: Spontaneous
  Country: US (occurrence: US)
  Receive Date: 20150618
  Receipt Date: 20150618
  Transmission Date: 20150821
  Serious: Yes (Other)
  Sender: FDA-Public Use
  Company Number: US-PFIZER INC-2015191775

PATIENT
  Sex: Female

DRUGS (2)
  1. ROBITUSSIN COUGH AND COLD D [Suspect]
     Active Substance: DEXTROMETHORPHAN HYDROBROMIDE\GUAIFENESIN\PSEUDOEPHEDRINE HYDROCHLORIDE
     Indication: EUPHORIC MOOD
     Dosage: UNK
  2. ROBITUSSIN COUGH AND COLD D [Suspect]
     Active Substance: DEXTROMETHORPHAN HYDROBROMIDE\GUAIFENESIN\PSEUDOEPHEDRINE HYDROCHLORIDE
     Indication: EUPHORIC MOOD
     Dosage: UNK

REACTIONS (3)
  - Dissociation [Unknown]
  - Gait disturbance [Unknown]
  - Drug abuse [Unknown]
